FAERS Safety Report 17496608 (Version 1)
Quarter: 2020Q1

REPORT INFORMATION
  Report Type: Spontaneous
  Country: US (occurrence: US)
  Receive Date: 20200304
  Receipt Date: 20200304
  Transmission Date: 20200409
  Serious: Yes (Other)
  Sender: FDA-Public Use
  Company Number: None

PATIENT
  Sex: Male

DRUGS (1)
  1. CALCIUM ACETATE 667 MG [Suspect]
     Active Substance: CALCIUM ACETATE

REACTIONS (3)
  - Drug ineffective [None]
  - Blood calcium increased [None]
  - Blood phosphorus abnormal [None]
